FAERS Safety Report 10594461 (Version 1)
Quarter: 2014Q4

REPORT INFORMATION
  Report Type: Spontaneous
  Country: US (occurrence: US)
  Receive Date: 20141119
  Receipt Date: 20141119
  Transmission Date: 20150529
  Serious: No
  Sender: FDA-Public Use
  Company Number: US-009507513-1411USA008974

PATIENT
  Weight: 57.14 kg

DRUGS (2)
  1. NEXPLANON [Suspect]
     Active Substance: ETONOGESTREL
     Dosage: STRENGTH 68MG, 1 ROD/3 YEARS
     Route: 059
     Dates: start: 20141022, end: 20141022
  2. NEXPLANON [Suspect]
     Active Substance: ETONOGESTREL
     Dosage: STRENGTH 68MG, 1 ROD/3 YEARS
     Route: 059
     Dates: start: 20141022

REACTIONS (3)
  - Product quality issue [Unknown]
  - No adverse event [Unknown]
  - Device difficult to use [Recovered/Resolved]

NARRATIVE: CASE EVENT DATE: 20141022
